FAERS Safety Report 6189044-X (Version None)
Quarter: 2009Q2

REPORT INFORMATION
  Report Type: 
  Country: None (occurrence: None)
  Receive Date: 20090513
  Receipt Date: 20090504
  Transmission Date: 20091009
  Serious: Yes (Other)
  Sender: FDA-Public Use
  Company Number: US-CELGENEUS-163-21880-09032078

PATIENT
  Sex: Female

DRUGS (1)
  1. REVLIMID [Suspect]
     Indication: MYELODYSPLASTIC SYNDROME
     Route: 048
     Dates: start: 20090301, end: 20090301

REACTIONS (8)
  - DIARRHOEA [None]
  - JOINT SWELLING [None]
  - OEDEMA [None]
  - PHARYNGEAL OEDEMA [None]
  - PRURITUS [None]
  - RASH PRURITIC [None]
  - RESPIRATORY DISTRESS [None]
  - SWELLING FACE [None]
